FAERS Safety Report 17981322 (Version 3)
Quarter: 2020Q3

REPORT INFORMATION
  Report Type: Spontaneous
  Country: US (occurrence: US)
  Receive Date: 20200705
  Receipt Date: 20200917
  Transmission Date: 20201103
  Serious: No
  Sender: FDA-Public Use
  Company Number: US-ASTRAZENECA-2020SE82482

PATIENT
  Age: 18269 Day
  Sex: Male
  Weight: 97.5 kg

DRUGS (2)
  1. METFORMIN [Concomitant]
     Active Substance: METFORMIN HYDROCHLORIDE
     Route: 048
  2. BYDUREON [Suspect]
     Active Substance: EXENATIDE
     Indication: DIABETES MELLITUS
     Route: 058
     Dates: start: 20200603

REACTIONS (4)
  - Wrong technique in device usage process [Not Recovered/Not Resolved]
  - Device malfunction [Unknown]
  - Visual acuity reduced [Unknown]
  - Needle issue [Unknown]

NARRATIVE: CASE EVENT DATE: 20200626
